FAERS Safety Report 10428508 (Version 3)
Quarter: 2015Q2

REPORT INFORMATION
  Report Type: Report from Study
  Country: BR (occurrence: BR)
  Receive Date: 20140903
  Receipt Date: 20150406
  Transmission Date: 20150821
  Serious: Yes (Hospitalization)
  Sender: FDA-Public Use
  Company Number: BR-B.I. PHARMACEUTICALS,INC./RIDGEFIELD-2014-BI-39996BI

PATIENT
  Age: 68 Year
  Sex: Female
  Weight: 67.3 kg

DRUGS (10)
  1. GLIBENCLAMIDE [Concomitant]
     Active Substance: GLYBURIDE
     Indication: DIABETES MELLITUS
     Dosage: 20 NR
     Route: 048
     Dates: start: 20131024
  2. BI 10773 [Suspect]
     Active Substance: EMPAGLIFLOZIN
     Indication: TYPE 2 DIABETES MELLITUS
     Dosage: 25 MG
     Route: 048
     Dates: start: 20120705
  3. SIMVASTATIN. [Concomitant]
     Active Substance: SIMVASTATIN
     Indication: DYSLIPIDAEMIA
     Dosage: 40 NR
     Route: 048
     Dates: start: 2006
  4. METFORMIN [Concomitant]
     Active Substance: METFORMIN HYDROCHLORIDE
     Indication: MYOCARDIAL ISCHAEMIA
     Dosage: 1500 NR
     Route: 048
     Dates: start: 2009
  5. OMEPRAZOLE. [Concomitant]
     Active Substance: OMEPRAZOLE
     Indication: GASTRITIS
     Dosage: 20 NR
     Route: 048
     Dates: start: 2006
  6. INSULIN HUMAN [Concomitant]
     Active Substance: INSULIN HUMAN
     Indication: DIABETES MELLITUS
     Dosage: 20 U
     Route: 058
     Dates: start: 20131025
  7. SUSTRATE [Concomitant]
     Active Substance: PROPATYL NITRATE
     Indication: MYOCARDIAL ISCHAEMIA
     Dosage: 30 NR
     Route: 048
     Dates: start: 2009
  8. LOSARTAN [Concomitant]
     Active Substance: LOSARTAN
     Indication: HYPERTENSION
     Dosage: 50 NR
     Route: 048
     Dates: start: 201105
  9. ANLODIPINO [Concomitant]
     Indication: HYPERTENSION
     Dosage: 10 NR
     Route: 048
     Dates: start: 201105
  10. ACETYLSALICYLIC ACID [Concomitant]
     Active Substance: ASPIRIN
     Indication: MYOCARDIAL ISCHAEMIA
     Dosage: 100 NR
     Route: 048
     Dates: start: 2009

REACTIONS (1)
  - Bundle branch block bilateral [Recovered/Resolved]

NARRATIVE: CASE EVENT DATE: 20140821
